FAERS Safety Report 6757309-6 (Version None)
Quarter: 2010Q2

REPORT INFORMATION
  Report Type: 
  Country: None (occurrence: None)
  Receive Date: 20100607
  Receipt Date: 20100526
  Transmission Date: 20101027
  Serious: No
  Sender: FDA-Public Use
  Company Number: US-BIOGENIDEC-2010BI017943

PATIENT
  Age: 42 Year
  Sex: Male

DRUGS (2)
  1. TYSABRI [Suspect]
     Indication: MULTIPLE SCLEROSIS
     Route: 042
     Dates: start: 20080703, end: 20080828
  2. TYSABRI [Suspect]
     Route: 042
     Dates: start: 20091224, end: 20100415

REACTIONS (2)
  - ABASIA [None]
  - MULTIPLE SCLEROSIS [None]
